FAERS Safety Report 9586272 (Version 2)
Quarter: 2013Q3

REPORT INFORMATION
  Report Type: Spontaneous
  Country: US (occurrence: None)
  Receive Date: 20130806
  Receipt Date: 20130812
  Transmission Date: 20140515
  Serious: Yes (Life-Threatening, Hospitalization)
  Sender: FDA-Public Use
  Company Number: 40020

PATIENT
  Age: 74 Year
  Sex: Female
  Weight: 61.24 kg

DRUGS (12)
  1. GLASSIA [Suspect]
     Indication: ALPHA-1 ANTI-TRYPSIN DEFICIENCY
     Route: 042
     Dates: start: 201104
  2. WELLBUTRIN [Concomitant]
  3. MAXZIDE [Concomitant]
  4. NAPROXEN [Concomitant]
  5. ROBAXIN [Concomitant]
  6. LIDODERM PATCHES [Concomitant]
  7. TRAMADOL (ULTRAM) [Concomitant]
  8. FLONASE [Concomitant]
  9. ALBUTEROL NEBULIZER [Concomitant]
  10. PROVENTIL RESCUE INHALER [Concomitant]
  11. VITAMIN D [Concomitant]
  12. ASPIRIN [Concomitant]

REACTIONS (2)
  - Cerebrovascular accident [None]
  - Pulmonary mass [None]
